FAERS Safety Report 18414877 (Version 1)
Quarter: 2020Q4

REPORT INFORMATION
  Report Type: Spontaneous
  Country: FR (occurrence: FR)
  Receive Date: 20201022
  Receipt Date: 20201022
  Transmission Date: 20210114
  Serious: Yes (Hospitalization, Other)
  Sender: FDA-Public Use
  Company Number: FR-MICRO LABS LIMITED-ML2020-03093

PATIENT
  Age: 47 Year
  Sex: Male

DRUGS (1)
  1. APIXABAN [Suspect]
     Active Substance: APIXABAN
     Indication: THROMBOSIS
     Dosage: IN THE MORNING AND EVENING
     Route: 048

REACTIONS (2)
  - Drug ineffective [Unknown]
  - Adrenal haemorrhage [Unknown]
